FAERS Safety Report 9960520 (Version 1)
Quarter: 2014Q1

REPORT INFORMATION
  Report Type: Report from Study
  Country: US (occurrence: US)
  Receive Date: 20140305
  Receipt Date: 20140305
  Transmission Date: 20141002
  Serious: No
  Sender: FDA-Public Use
  Company Number: US-ABBVIE-13P-163-1110224-00

PATIENT
  Sex: Male
  Weight: 49.94 kg

DRUGS (5)
  1. HUMIRA [Suspect]
     Indication: PSORIASIS
     Dates: end: 201212
  2. HUMIRA [Suspect]
     Dates: start: 201304
  3. ALBUTEROL [Concomitant]
     Indication: ASTHMA
     Route: 055
  4. ZYRTEC [Concomitant]
     Indication: ASTHMA
  5. ALBUTEROL [Concomitant]
     Indication: ASTHMA

REACTIONS (4)
  - Muscular weakness [Recovered/Resolved]
  - Syncope [Recovered/Resolved]
  - Asthma [Recovered/Resolved]
  - Nasopharyngitis [Recovered/Resolved]
